FAERS Safety Report 9999317 (Version 1)
Quarter: 2014Q1

REPORT INFORMATION
  Report Type: Spontaneous
  Country: US (occurrence: None)
  Receive Date: 20140311
  Receipt Date: 20140311
  Transmission Date: 20141002
  Serious: Yes (Life-Threatening)
  Sender: FDA-Public Use
  Company Number: None

PATIENT
  Age: 39 Year
  Sex: Female
  Weight: 65.77 kg

DRUGS (2)
  1. EFFEXOR [Suspect]
     Indication: ANXIETY
     Dosage: 1 ONCE DAILY
  2. EFFEXOR [Suspect]
     Indication: PANIC ATTACK
     Dosage: 1 ONCE DAILY

REACTIONS (5)
  - Drug withdrawal syndrome [None]
  - Suicidal ideation [None]
  - Nausea [None]
  - Tremor [None]
  - Pain [None]
